FAERS Safety Report 12101053 (Version 3)
Quarter: 2016Q3

REPORT INFORMATION
  Report Type: Spontaneous
  Country: US (occurrence: US)
  Receive Date: 20160222
  Receipt Date: 20160823
  Transmission Date: 20161109
  Serious: No
  Sender: FDA-Public Use
  Company Number: US-PFIZER INC-2016078138

PATIENT
  Age: 60 Year
  Sex: Female
  Weight: 59 kg

DRUGS (12)
  1. CETIRIZINE HCL [Concomitant]
     Active Substance: CETIRIZINE HYDROCHLORIDE
     Dosage: (CAPSULE AS NEEDED ONCE A DAY)10 MG, AS NEEDED
  2. CALCIUM +D3 [Concomitant]
     Active Substance: CALCIUM\CHOLECALCIFEROL
     Dosage: UNK (CALCIUM 1200+ D3 600-40-500 MG-MG)
  3. CETIRIZINE HCL [Concomitant]
     Active Substance: CETIRIZINE HYDROCHLORIDE
     Indication: DRUG HYPERSENSITIVITY
     Dosage: 10 MG, DAILY
  4. PREMARIN [Suspect]
     Active Substance: ESTROGENS, CONJUGATED
     Indication: VULVOVAGINAL DRYNESS
     Dosage: 0.5 MG, SINGLE
     Route: 067
     Dates: start: 20160206, end: 20160206
  5. METROGEL VAGINAL [Concomitant]
     Active Substance: METRONIDAZOLE
     Dosage: UNK UNK, DAILY (INSERT 1 APPLICATOR(S) FULL EVERY DAY BY VAGINAL ROUTE FOR 5 DAYS)
     Route: 067
  6. PREMARIN [Suspect]
     Active Substance: ESTROGENS, CONJUGATED
     Indication: VAGINAL INFLAMMATION
     Dosage: 0.5 G, 2X/WEEK
     Route: 067
     Dates: start: 20160205
  7. ALBUTEROL SULFATE. [Concomitant]
     Active Substance: ALBUTEROL SULFATE
     Dosage: 3 ML, 3X/DAY, (2.5 MG/3 ML) 0.08% NEBULIZATION SOLUTION
     Route: 055
  8. VENTOLIN [Concomitant]
     Active Substance: ALBUTEROL SULFATE
     Indication: ASTHMA
     Dosage: UNK, DAILY (108 MCG/ACT 2 PUFFS)
  9. FLONASE [Concomitant]
     Active Substance: FLUTICASONE PROPIONATE
     Indication: DRUG HYPERSENSITIVITY
     Dosage: UNK UNK, AS NEEDED (50 MCG/ACT 1 SPRAY, 1 SPRAY IN EACH NOSTRIL ONCE A DAY)
  10. VENTOLIN HFA [Concomitant]
     Active Substance: ALBUTEROL SULFATE
     Indication: ASTHMA
     Dosage: UNK (90 MCG/ACTUATION AEROSOL INHALER)
     Route: 055
  11. VENTOLIN HFA [Concomitant]
     Active Substance: ALBUTEROL SULFATE
     Dosage: UNK, AS NEEDED (108 (90 BASE) MCG/ACT, 2 PUFFS AS NEEDED EVERY 4 HRS)
  12. HALCION [Concomitant]
     Active Substance: TRIAZOLAM
     Dosage: 0.25 MG, AS NEEDED (1 TABLET AT BEDTIME AS NEEDED ONCE A DAY)

REACTIONS (7)
  - Vaginal infection [Unknown]
  - Vulvovaginitis [Unknown]
  - Drug hypersensitivity [Unknown]
  - Dermatitis contact [Unknown]
  - Vulvovaginal burning sensation [Recovering/Resolving]
  - Vulvovaginal discomfort [Unknown]
  - Vaginal discharge [Recovering/Resolving]

NARRATIVE: CASE EVENT DATE: 20160206
